FAERS Safety Report 6007020-4 (Version None)
Quarter: 2008Q4

REPORT INFORMATION
  Report Type: 
  Country: None (occurrence: None)
  Receive Date: 20081215
  Receipt Date: 20081204
  Transmission Date: 20090506
  Serious: Yes (Hospitalization)
  Sender: FDA-Public Use
  Company Number: 2008SP025031

PATIENT
  Age: 84 Year
  Sex: Male

DRUGS (5)
  1. DIAFUSOR (GLYCERYL TRINITRATE) (GLYCERYL TRINITRATE) [Suspect]
     Indication: DRUG USE FOR UNKNOWN INDICATION
     Dosage: 5 MG; QD; CUT
     Route: 003
     Dates: start: 20010101, end: 20010327
  2. SURBRONC (AMBROXOL HYDROCHLORIDE) [Suspect]
     Indication: DRUG USE FOR UNKNOWN INDICATION
     Dates: start: 20010101, end: 20010324
  3. LOXEN LP (NO PREF. NAME) [Suspect]
     Indication: DRUG USE FOR UNKNOWN INDICATION
     Dosage: 50 MG;
     Dates: start: 20010101, end: 20010327
  4. ISOPHANE INSULIN [Concomitant]
  5. PREVISCAN [Concomitant]

REACTIONS (2)
  - CUTANEOUS VASCULITIS [None]
  - VASCULAR PURPURA [None]
